FAERS Safety Report 20764331 (Version 1)
Quarter: 2022Q2

REPORT INFORMATION
  Report Type: Spontaneous
  Country: US (occurrence: US)
  Receive Date: 20220428
  Receipt Date: 20220428
  Transmission Date: 20220721
  Serious: Yes (Hospitalization)
  Sender: FDA-Public Use
  Company Number: US-AMGEN-USASP2022069081

PATIENT
  Age: 81 Year
  Sex: Male
  Weight: 59.864 kg

DRUGS (1)
  1. MVASI [Suspect]
     Active Substance: BEVACIZUMAB-AWWB
     Indication: Colorectal cancer stage IV
     Dosage: 313 MILLIGRAM, Q2WK
     Route: 042

REACTIONS (2)
  - Mental status changes [Unknown]
  - Dysarthria [Unknown]
